FAERS Safety Report 12375448 (Version 1)
Quarter: 2016Q2

REPORT INFORMATION
  Report Type: Spontaneous
  Country: US (occurrence: None)
  Receive Date: 20160516
  Receipt Date: 20160516
  Transmission Date: 20160815
  Serious: No
  Sender: FDA-Public Use
  Company Number: None

PATIENT
  Sex: Male

DRUGS (1)
  1. CYMBALTA [Suspect]
     Active Substance: DULOXETINE HYDROCHLORIDE

REACTIONS (6)
  - Urinary tract disorder [None]
  - Malaise [None]
  - No therapeutic response [None]
  - Somnolence [None]
  - Pollakiuria [None]
  - Fatigue [None]
